FAERS Safety Report 5212740-5 (Version None)
Quarter: 2006Q4

REPORT INFORMATION
  Report Type: 
  Country: None (occurrence: None)
  Receive Date: 20061115
  Receipt Date: 20060822
  Transmission Date: 20070319
  Serious: No
  Sender: FDA-Public Use
  Company Number: 200615250BWH

PATIENT
  Age: 17 Year
  Sex: Female

DRUGS (9)
  1. NEXAVAR [Suspect]
     Indication: EWING'S SARCOMA
     Dosage: 400 MG, BID; ORAL, 300 MG, BID; ORAL
     Route: 048
     Dates: start: 20060801
  2. NEXAVAR [Suspect]
     Indication: EWING'S SARCOMA
     Dosage: 400 MG, BID; ORAL, 300 MG, BID; ORAL
     Route: 048
     Dates: start: 20060801
  3. CELEBREX [Concomitant]
  4. VANTIN [Concomitant]
  5. PEANUT WHOLE SHELL TABLETS [Concomitant]
  6. SHARK LIVER OIL [Concomitant]
  7. VITAMIN B6 [Concomitant]
  8. ALLOPURINOL SODIUM [Concomitant]
  9. BACTRIM [Concomitant]

REACTIONS (4)
  - ALOPECIA [None]
  - ARTHRALGIA [None]
  - BLISTER [None]
  - ERYTHEMA [None]
